FAERS Safety Report 15578552 (Version 2)
Quarter: 2018Q4

REPORT INFORMATION
  Report Type: Spontaneous
  Country: SK (occurrence: SK)
  Receive Date: 20181102
  Receipt Date: 20181129
  Transmission Date: 20190205
  Serious: Yes (Death)
  Sender: FDA-Public Use
  Company Number: SK-CELLTRION INC.-2018SK023406

PATIENT

DRUGS (14)
  1. INFLECTRA [Suspect]
     Active Substance: INFLIXIMAB-DYYB
     Indication: PRODUCT USED FOR UNKNOWN INDICATION
     Dosage: 100 MG, UNK
     Route: 058
     Dates: start: 20181005
  2. TRANDOLAPRIL. [Concomitant]
     Active Substance: TRANDOLAPRIL
  3. BLEMAREN [Concomitant]
  4. METHOTREXATE. [Concomitant]
     Active Substance: METHOTREXATE
  5. FLUTICASONE. [Concomitant]
     Active Substance: FLUTICASONE
  6. FOLIC ACID. [Concomitant]
     Active Substance: FOLIC ACID
  7. ISOPTIN                            /00014301/ [Concomitant]
  8. ATORIS [Concomitant]
     Active Substance: ATORVASTATIN CALCIUM
  9. MILURIT [Concomitant]
     Active Substance: ALLOPURINOL
  10. ALERID [Concomitant]
     Active Substance: CETIRIZINE HYDROCHLORIDE
  11. ACHILLEA MILLEFOLIUM [Concomitant]
     Active Substance: ACHILLEA MILLEFOLIUM
  12. INEGY [Concomitant]
     Active Substance: EZETIMIBE\SIMVASTATIN
  13. DETRALEX [Concomitant]
     Active Substance: DIOSMIN\HESPERIDIN
  14. ASCORUTIN [Concomitant]
     Active Substance: ASCORBIC ACID\RUTIN

REACTIONS (2)
  - Product use issue [Unknown]
  - Pancreatic injury [Fatal]
